FAERS Safety Report 6098196-1 (Version None)
Quarter: 2009Q1

REPORT INFORMATION
  Report Type: 
  Country: None (occurrence: None)
  Receive Date: 20090227
  Receipt Date: 20090219
  Transmission Date: 20090719
  Serious: Yes (Other)
  Sender: FDA-Public Use
  Company Number: GB-ELI_LILLY_AND_COMPANY-GB200902006451

PATIENT
  Age: 28 Year
  Sex: Female

DRUGS (3)
  1. ZYPREXA [Suspect]
     Indication: SCHIZOPHRENIA
     Dosage: 20 MG, UNK
  2. ZYPREXA [Suspect]
     Dosage: 15 MG, UNK
     Dates: start: 20090101
  3. DULOXETINE [Concomitant]
     Dosage: 60 MG, UNK

REACTIONS (1)
  - DRUG LEVEL INCREASED [None]
